FAERS Safety Report 6197835-4 (Version None)
Quarter: 2009Q2

REPORT INFORMATION
  Report Type: 
  Country: None (occurrence: None)
  Receive Date: 20090521
  Receipt Date: 20090521
  Transmission Date: 20091009
  Serious: Yes (Other)
  Sender: FDA-Public Use
  Company Number: US-PFIZER INC-2009154277

PATIENT
  Sex: Female
  Weight: 113.39 kg

DRUGS (4)
  1. CHANTIX [Suspect]
     Indication: SMOKING CESSATION THERAPY
     Dosage: 1 MG, UNK
     Dates: start: 20081231, end: 20090109
  2. PROZAC [Concomitant]
     Dosage: UNK
  3. GEODON [Concomitant]
     Dosage: UNK
  4. RISPERDAL [Concomitant]
     Dosage: UNK

REACTIONS (2)
  - DEPRESSION [None]
  - SUICIDAL IDEATION [None]
